FAERS Safety Report 8230225-9 (Version None)
Quarter: 2012Q1

REPORT INFORMATION
  Report Type: 
  Country: None (occurrence: None)
  Receive Date: 20120307
  Receipt Date: 20090602
  Transmission Date: 20120608
  Serious: Yes (Hospitalization)
  Sender: FDA-Public Use
  Company Number: PHEH2009US04836

PATIENT
  Sex: Male

DRUGS (4)
  1. PREVACID [Concomitant]
  2. TENORMIN [Concomitant]
  3. AFINITOR [Suspect]
     Indication: RENAL CELL CARCINOMA
     Dosage: 10 MG,, ORAL
     Route: 048
     Dates: start: 20090427, end: 20090508
  4. ACTOS (PIOGLITAZONE, PIOGLITAZONE HYDROCHLORIDE) [Concomitant]

REACTIONS (9)
  - DYSPNOEA [None]
  - MALAISE [None]
  - NAUSEA [None]
  - PYREXIA [None]
  - CHILLS [None]
  - PNEUMONIA [None]
  - FATIGUE [None]
  - VOMITING [None]
  - ASTHENIA [None]
